FAERS Safety Report 13362071 (Version 1)
Quarter: 2017Q1

REPORT INFORMATION
  Report Type: Spontaneous
  Country: US (occurrence: US)
  Receive Date: 20170323
  Receipt Date: 20170323
  Transmission Date: 20170429
  Serious: Yes (Hospitalization, Other)
  Sender: FDA-Public Use
  Company Number: US-AMGEN-USASP2017041065

PATIENT
  Age: 52 Year
  Sex: Female

DRUGS (4)
  1. ENBREL [Suspect]
     Active Substance: ETANERCEPT
     Indication: RHEUMATOID ARTHRITIS
     Dosage: 50 MG, QWK
     Route: 065
  2. PREDNISONE. [Concomitant]
     Active Substance: PREDNISONE
     Dosage: 4 MG, DAILY
  3. NAPROSYN [Concomitant]
     Active Substance: NAPROXEN
     Dosage: DAILY
  4. ENBREL [Suspect]
     Active Substance: ETANERCEPT
     Dosage: 25 MG, 2 TIMES/WK
     Route: 065

REACTIONS (12)
  - Asthenia [Unknown]
  - Pharyngitis [Unknown]
  - Chills [Unknown]
  - Dyspnoea [Unknown]
  - Loss of consciousness [Unknown]
  - Blood pressure abnormal [Unknown]
  - Oesophageal infection [Unknown]
  - Laryngeal oedema [Unknown]
  - Ear infection [Unknown]
  - Malaise [Unknown]
  - Quality of life decreased [Unknown]
  - Injection site pain [Unknown]

NARRATIVE: CASE EVENT DATE: 2016
